FAERS Safety Report 12899750 (Version 4)
Quarter: 2017Q3

REPORT INFORMATION
  Report Type: Spontaneous
  Country: US (occurrence: US)
  Receive Date: 20161101
  Receipt Date: 20170810
  Transmission Date: 20171127
  Serious: Yes (Hospitalization)
  Sender: FDA-Public Use
  Company Number: US-PFIZER INC-2016505283

PATIENT
  Age: 67 Year
  Sex: Female
  Weight: 94 kg

DRUGS (26)
  1. AMMONIUM LACTATE. [Concomitant]
     Active Substance: AMMONIUM LACTATE
     Dosage: UNK UNK, 2X/DAY (1 (12%) CREAM TOPICAL B.I.D)
     Route: 061
  2. HYDROMORPHONE HCL [Concomitant]
     Active Substance: HYDROMORPHONE HYDROCHLORIDE
     Dosage: UNK (1TABLET ORAL Q 6 HOURS)
     Route: 048
  3. BOSULIF [Concomitant]
     Active Substance: BOSUTINIB MONOHYDRATE
     Dosage: UNK (MG)
  4. VFEND [Concomitant]
     Active Substance: VORICONAZOLE
     Dosage: 200 MG, UNK
  5. BETAMETHASONE VALERATE. [Concomitant]
     Active Substance: BETAMETHASONE VALERATE
     Dosage: UNK UNK, AS NEEDED (CREAM TOPICAL PRN)
     Route: 061
  6. SUTENT [Concomitant]
     Active Substance: SUNITINIB MALATE
     Dosage: UNK (MG)
  7. XALKORI [Concomitant]
     Active Substance: CRIZOTINIB
     Dosage: 250 MG, UNK
  8. BUPROPION HCL [Concomitant]
     Active Substance: BUPROPION HYDROCHLORIDE
     Dosage: 150 MG, AS NEEDED (1TABLET (OF 150 MG) ORAL DAILY PRN)
     Route: 048
  9. XALKORI [Concomitant]
     Active Substance: CRIZOTINIB
     Dosage: 200 MG, UNK
  10. REVATIO [Concomitant]
     Active Substance: SILDENAFIL CITRATE
     Dosage: 20 MG, UNK
  11. IBRANCE [Concomitant]
     Active Substance: PALBOCICLIB
     Dosage: 125 MG, UNK
  12. RAPAMUNE [Concomitant]
     Active Substance: SIROLIMUS
     Dosage: 5 MG, UNK
  13. VITAMIN D [Concomitant]
     Active Substance: CHOLECALCIFEROL
     Dosage: 50000 IU, DAILY (1TABLET (OF 50,000 UNITS) ORAL DAILY ON M)
     Route: 048
  14. EMCYT [Concomitant]
     Active Substance: ESTRAMUSTINE PHOSPHATE SODIUM
     Dosage: UNK (MG)
  15. RAPAMUNE [Concomitant]
     Active Substance: SIROLIMUS
     Dosage: 1 MG, UNK
  16. BENEFIX [Concomitant]
     Active Substance: COAGULATION FACTOR IX RECOMBINANT HUMAN\ISOPROPYL ALCOHOL
     Dosage: UNK
  17. AMBIEN CR [Concomitant]
     Active Substance: ZOLPIDEM TARTRATE
     Dosage: 12.5 MG, AS NEEDED (1 TABLET (OF 12.5MG), TABLET, CONTROLLED RELEASE ORAL AT BEDTIME PRN)
     Route: 048
  18. EXEMESTANE. [Concomitant]
     Active Substance: EXEMESTANE
     Dosage: 25 MG, DAILY (1TABLET (OF 25 MG) ORAL DAILY)
     Route: 048
  19. INLYTA [Concomitant]
     Active Substance: AXITINIB
     Dosage: UNK UNK, 2X/DAY (MG BID)
  20. XYNTHA [Concomitant]
     Active Substance: ANTIHEMOPHILIC FACTOR, HUMAN RECOMBINANT RESIDUES 743-1636 DELETED
     Dosage: UNK
  21. AROMASIN [Suspect]
     Active Substance: EXEMESTANE
     Indication: BREAST CANCER
     Dosage: 25 MG, DAILY
     Route: 048
  22. IBRANCE [Concomitant]
     Active Substance: PALBOCICLIB
     Dosage: 75 MG, UNK
  23. IBRANCE [Concomitant]
     Active Substance: PALBOCICLIB
     Dosage: 100 MG, UNK
  24. VFEND [Concomitant]
     Active Substance: VORICONAZOLE
     Dosage: 50 MG, UNK
  25. ELELYSO [Concomitant]
     Active Substance: TALIGLUCERASE ALFA
     Dosage: UNK UNK, WEEKLY
  26. RAPAMUNE [Concomitant]
     Active Substance: SIROLIMUS
     Dosage: 2 MG, UNK

REACTIONS (2)
  - Post procedural complication [Unknown]
  - Uterine cancer [Recovered/Resolved]

NARRATIVE: CASE EVENT DATE: 201612
